FAERS Safety Report 9834635 (Version 2)
Quarter: 2014Q1

REPORT INFORMATION
  Report Type: Spontaneous
  Country: JP (occurrence: JP)
  Receive Date: 20140122
  Receipt Date: 20140206
  Transmission Date: 20141002
  Serious: Yes (Other)
  Sender: FDA-Public Use
  Company Number: JP-JNJFOC-20140111883

PATIENT
  Age: 75 Year
  Sex: Male

DRUGS (6)
  1. FINIBAX [Suspect]
     Indication: BACTERAEMIA
     Route: 041
     Dates: start: 20140107
  2. FINIBAX [Suspect]
     Indication: BACTERAEMIA
     Route: 041
     Dates: start: 20140102, end: 20140106
  3. SIGMART [Concomitant]
     Indication: AORTIC ANEURYSM
     Route: 048
     Dates: start: 20140102
  4. BAYASPIRIN [Concomitant]
     Indication: AORTIC ANEURYSM
     Route: 048
     Dates: start: 20140102
  5. PLAVIX [Concomitant]
     Indication: AORTIC ANEURYSM
     Route: 048
  6. LASIX [Concomitant]
     Indication: AORTIC ANEURYSM
     Route: 048

REACTIONS (1)
  - Hepatic function abnormal [Recovering/Resolving]
